FAERS Safety Report 6847052-7 (Version None)
Quarter: 2010Q3

REPORT INFORMATION
  Report Type: 
  Country: None (occurrence: None)
  Receive Date: 20100716
  Receipt Date: 20100707
  Transmission Date: 20110219
  Serious: Yes (Other)
  Sender: FDA-Public Use
  Company Number: US-BIOGENIDEC-2010BI023268

PATIENT
  Age: 49 Year
  Sex: Female

DRUGS (1)
  1. TYSABRI [Suspect]
     Indication: MULTIPLE SCLEROSIS
     Route: 042
     Dates: start: 20100401

REACTIONS (16)
  - ALTERED VISUAL DEPTH PERCEPTION [None]
  - BALANCE DISORDER [None]
  - BLOOD PRESSURE ABNORMAL [None]
  - COGNITIVE DISORDER [None]
  - CONVULSION [None]
  - DISSOCIATION [None]
  - ELECTROENCEPHALOGRAM ABNORMAL [None]
  - FALL [None]
  - FATIGUE [None]
  - HYPERSENSITIVITY [None]
  - KIDNEY INFECTION [None]
  - MEMORY IMPAIRMENT [None]
  - MIGRAINE [None]
  - MUSCULAR WEAKNESS [None]
  - RASH [None]
  - VISUAL IMPAIRMENT [None]
